FAERS Safety Report 9485321 (Version 4)
Quarter: 2014Q1

REPORT INFORMATION
  Report Type: Report from Study
  Country: US (occurrence: US)
  Receive Date: 20130828
  Receipt Date: 20140116
  Transmission Date: 20141002
  Serious: Yes (Hospitalization)
  Sender: FDA-Public Use
  Company Number: US-EXELIXIS-XL18413003189

PATIENT
  Age: 70 Year
  Sex: Male
  Weight: 83 kg

DRUGS (24)
  1. XL184 [Suspect]
     Indication: PROSTATE CANCER
     Dosage: 60 MG, QD
     Route: 048
     Dates: start: 20130426, end: 20130523
  2. XL184 [Suspect]
     Dosage: 40 MG, QD
     Route: 048
     Dates: start: 20130523, end: 20130723
  3. XL184 [Suspect]
     Indication: PROSTATE CANCER
     Dosage: 5 MG, BID
     Route: 048
     Dates: start: 20130426, end: 20130723
  4. BUPROPION [Concomitant]
  5. ATENOLOL [Concomitant]
  6. ZOLPIDEM [Concomitant]
  7. NIFEDIPINE [Concomitant]
  8. CALCIUM +D [Concomitant]
  9. AMPHETAMINE DEXTROAMPHETAMINE [Concomitant]
  10. CITALOPRAM [Concomitant]
  11. CLONAZEPAM [Concomitant]
  12. DARIFENACIN HYDROBROMIDE [Concomitant]
  13. DENOSUMAB [Concomitant]
  14. DILAUDID [Concomitant]
  15. ESOMEPRAZOLE MAGNESIUM [Concomitant]
  16. IBUPROFEN [Concomitant]
  17. LEUPROLIDE [Concomitant]
  18. METHYLPHENIDATE [Concomitant]
  19. MODAFINIL [Concomitant]
  20. MORPHINE SULFATE [Concomitant]
  21. PENICILLIN G POTASSIUM [Concomitant]
  22. POLYETHYLENE GLYCOL [Concomitant]
  23. SODIUM FLOURIDE [Concomitant]
  24. SOLIFENACIN SUCCINATE [Concomitant]

REACTIONS (3)
  - Pulmonary embolism [Not Recovered/Not Resolved]
  - Deep vein thrombosis [Not Recovered/Not Resolved]
  - Epistaxis [Recovered/Resolved]
